FAERS Safety Report 8476465-5 (Version None)
Quarter: 2012Q2

REPORT INFORMATION
  Report Type: 
  Country: None (occurrence: None)
  Receive Date: 20120628
  Receipt Date: 20120613
  Transmission Date: 20120825
  Serious: Yes (Hospitalization, Other)
  Sender: FDA-Public Use
  Company Number: DE-FRI-1000036605

PATIENT
  Sex: Male

DRUGS (4)
  1. MIRTAZAPINE [Interacting]
     Dosage: 30 MG
     Route: 048
     Dates: start: 20110224, end: 20110320
  2. MIRTAZAPINE [Interacting]
     Dosage: 15 MG
     Dates: start: 20110321, end: 20110403
  3. ESCITALOPRAM [Suspect]
     Dosage: 20 MG
     Route: 048
     Dates: start: 20110224, end: 20110314
  4. ESCITALOPRAM [Interacting]
     Dosage: 10 MG
     Route: 048
     Dates: start: 20110314, end: 20120403

REACTIONS (4)
  - BLOOD THYROID STIMULATING HORMONE DECREASED [None]
  - AKATHISIA [None]
  - POTENTIATING DRUG INTERACTION [None]
  - DELIRIUM [None]
